FAERS Safety Report 21374586 (Version 1)
Quarter: 2022Q3

REPORT INFORMATION
  Report Type: Spontaneous
  Country: CL (occurrence: CL)
  Receive Date: 20220926
  Receipt Date: 20220926
  Transmission Date: 20221027
  Serious: Yes (Hospitalization)
  Sender: FDA-Public Use
  Company Number: CL-NOVOPROD-959834

PATIENT
  Age: 77 Year
  Sex: Male

DRUGS (3)
  1. OZEMPIC [Suspect]
     Active Substance: SEMAGLUTIDE
     Indication: Diabetes mellitus
     Dosage: UNK
  2. PREDNISONE [Concomitant]
     Active Substance: PREDNISONE
     Indication: Neoplasm malignant
     Dosage: 5 MG, QD
     Dates: start: 2021
  3. ABIRATERONE [Concomitant]
     Active Substance: ABIRATERONE
     Indication: Neoplasm malignant
     Dosage: UNK
     Dates: start: 2021

REACTIONS (5)
  - Urinary tract infection [Not Recovered/Not Resolved]
  - Gastrointestinal disorder [Unknown]
  - Renal failure [Not Recovered/Not Resolved]
  - Vomiting [Unknown]
  - Nausea [Unknown]
